FAERS Safety Report 7989025-7 (Version None)
Quarter: 2011Q4

REPORT INFORMATION
  Report Type: 
  Country: None (occurrence: None)
  Receive Date: 20111219
  Receipt Date: 20111209
  Transmission Date: 20120403
  Serious: Yes (Hospitalization, Other)
  Sender: FDA-Public Use
  Company Number: PHEH2011US06668

PATIENT
  Sex: Female
  Weight: 60.3 kg

DRUGS (17)
  1. EXJADE [Suspect]
     Indication: IRON OVERLOAD
  2. COLECALCIFEROL [Concomitant]
     Dosage: 50000 U,
     Route: 048
  3. LOVAZA [Concomitant]
     Dosage: 2000 MG, QD
     Route: 048
  4. OXYBUTYNIN CHLORIDE [Concomitant]
     Dosage: 8 MG, QID
  5. VITAMIN E [Concomitant]
     Dosage: 400 U,
     Route: 048
  6. EXJADE [Suspect]
     Indication: CARDIOMYOPATHY
  7. OMEPRAZOLE [Concomitant]
     Dosage: 20 MG, QD
     Route: 048
  8. CALCIUM CARBONATE [Concomitant]
     Dosage: UNK
  9. ESTRADIOL [Concomitant]
     Dosage: 10 UG,
  10. VITAMIN B COMPLEX CAP [Concomitant]
     Dosage: 1 EACH DAILY
     Route: 048
  11. TESTOSTERONE [Concomitant]
     Dosage: 2.5 MG,
     Route: 048
  12. CHOLECALCIFEROL [Concomitant]
     Dosage: 5000 U,
     Route: 048
  13. MAGNECIUM GLYCINATE [Concomitant]
     Dosage: UNK
  14. IPRIFLAVONE [Concomitant]
     Dosage: 300 MG,DAILY
     Route: 048
  15. EXJADE [Suspect]
     Indication: THALASSAEMIA BETA
     Dosage: 1250 MG, QD
     Route: 048
     Dates: start: 20110922, end: 20111027
  16. PRASTERONE [Concomitant]
     Dosage: 1 EACH DAILY
     Route: 048
  17. UBIDECARENONE [Concomitant]
     Dosage: 300 MG, DAILY
     Route: 048

REACTIONS (13)
  - CARDIAC DISORDER [None]
  - WHITE BLOOD CELL COUNT DECREASED [None]
  - ABDOMINAL DISCOMFORT [None]
  - MEAN CELL HAEMOGLOBIN DECREASED [None]
  - BLOOD CREATININE INCREASED [None]
  - MEAN CELL HAEMOGLOBIN CONCENTRATION DECREASED [None]
  - DEHYDRATION [None]
  - EJECTION FRACTION DECREASED [None]
  - MEAN CELL VOLUME DECREASED [None]
  - BLOOD CALCIUM DECREASED [None]
  - DIARRHOEA [None]
  - RED BLOOD CELL COUNT INCREASED [None]
  - HAEMOGLOBIN DECREASED [None]
